FAERS Safety Report 7534804-3 (Version None)
Quarter: 2011Q2

REPORT INFORMATION
  Report Type: 
  Country: None (occurrence: None)
  Receive Date: 20110609
  Receipt Date: 20080904
  Transmission Date: 20111010
  Serious: Yes (Other)
  Sender: FDA-Public Use
  Company Number: PHHY2008CA20537

PATIENT
  Sex: Male

DRUGS (6)
  1. PAMIDRONATE DISODIUM [Concomitant]
     Dosage: UNKNOWN
  2. PENICILLIN NOS [Concomitant]
     Indication: PROPHYLAXIS
     Dosage: UNKNOWN
  3. TESTOSTERONE [Concomitant]
     Dosage: UNKNOWN
  4. VITAMIN D [Concomitant]
     Dosage: UNKNOWN
  5. CALCIUM CARBONATE [Concomitant]
     Dosage: UNKNOWN
  6. DESFERAL [Suspect]
     Indication: IRON OVERLOAD
     Dosage: 1.5 MG, UNK
     Dates: start: 20080828

REACTIONS (1)
  - CARDIAC SIDEROSIS [None]
